FAERS Safety Report 9548848 (Version 1)
Quarter: 2013Q2

REPORT INFORMATION
  Report Type: Spontaneous
  Country: US (occurrence: None)
  Receive Date: 20130627
  Receipt Date: 20130627
  Transmission Date: 20140414
  Serious: Yes (Other)
  Sender: FDA-Public Use
  Company Number: 1000045372

PATIENT
  Age: 56 Year
  Sex: Female

DRUGS (2)
  1. LINZESS [Suspect]
     Indication: IRRITABLE BOWEL SYNDROME
     Dosage: 290 MCG )290 MCG, 1 IN 1 D), ORAL
     Route: 048
     Dates: start: 20130514
  2. VIIBRYD (VILAZODONE) (VILAZODONE) [Concomitant]

REACTIONS (1)
  - Diarrhoea [None]
